FAERS Safety Report 17228189 (Version 1)
Quarter: 2020Q1

REPORT INFORMATION
  Report Type: Spontaneous
  Country: NP (occurrence: NP)
  Receive Date: 20200103
  Receipt Date: 20200103
  Transmission Date: 20200409
  Serious: Yes (Life-Threatening, Hospitalization, Other)
  Sender: FDA-Public Use
  Company Number: NP-LUPIN PHARMACEUTICALS INC.-2019-08174

PATIENT
  Age: 28 Year
  Sex: Female

DRUGS (6)
  1. METRONIDAZOLE. [Suspect]
     Active Substance: METRONIDAZOLE
     Indication: PROPHYLAXIS
     Dosage: 2 GRAM, SINGLE
     Route: 042
  2. CEFTRIAXONE INJECTION [Suspect]
     Active Substance: CEFTRIAXONE SODIUM
     Indication: ANTIPYRESIS
     Dosage: 2 GRAM, QD
     Route: 042
  3. CEFAZOLINE [Suspect]
     Active Substance: CEFAZOLIN SODIUM
     Indication: PRODUCT USED FOR UNKNOWN INDICATION
     Dosage: 1 GRAM
     Route: 042
  4. CEFAZOLINE [Suspect]
     Active Substance: CEFAZOLIN SODIUM
     Dosage: 3 DOSAGE FORM, TID
     Route: 042
  5. CEFADROXIL. [Suspect]
     Active Substance: CEFADROXIL
     Indication: ANTIPYRESIS
     Dosage: 500 MILLIGRAM, BID
     Route: 065
  6. LORATADINE. [Suspect]
     Active Substance: LORATADINE
     Indication: ANTIPYRESIS
     Dosage: 10 MILLIGRAM, QD, NIGHT
     Route: 065

REACTIONS (2)
  - Toxic epidermal necrolysis [Recovered/Resolved]
  - Exposure during pregnancy [Unknown]
